FAERS Safety Report 14186602 (Version 4)
Quarter: 2018Q3

REPORT INFORMATION
  Report Type: Spontaneous
  Country: US (occurrence: US)
  Receive Date: 20171114
  Receipt Date: 20180813
  Transmission Date: 20181010
  Serious: No
  Sender: FDA-Public Use
  Company Number: US-CELLTRION INC.-2017US012747

PATIENT

DRUGS (23)
  1. TEGRETOL [Concomitant]
     Active Substance: CARBAMAZEPINE
     Dosage: 1 TABLET, BID
     Route: 048
  2. NORCO [Concomitant]
     Active Substance: ACETAMINOPHEN\HYDROCODONE BITARTRATE
     Dosage: 5?325 MG,1 TABLET, AS NEEDED THREE TIMES A DAY
     Route: 048
  3. GABAPENTIN. [Concomitant]
     Active Substance: GABAPENTIN
     Dosage: 300 MG, 1 CAPSULE, TID
     Route: 048
  4. PRAVASTATIN SODIUM. [Concomitant]
     Active Substance: PRAVASTATIN SODIUM
     Dosage: 1 TABLET, DAILY
     Route: 048
  5. OMEPRAZOLE. [Concomitant]
     Active Substance: OMEPRAZOLE
     Dosage: 1 CAPSULE, DAILY
     Route: 048
  6. FLUVOXAMINE MALEATE. [Concomitant]
     Active Substance: FLUVOXAMINE MALEATE
     Dosage: 1 TABLET AT BEDTIME
     Route: 048
  7. REMICADE [Concomitant]
     Active Substance: INFLIXIMAB
     Dosage: 100 MG, SOLUTION RECONSTITUTED AS DIRECTED
  8. INFLECTRA [Suspect]
     Active Substance: INFLIXIMAB-DYYB
     Indication: RHEUMATOID ARTHRITIS
     Dosage: CYCLIC (3 VIALS AT 0, 2, 4, AND THEN EVERY 8 WEEKS)
     Route: 042
  9. REGLAN [Concomitant]
     Active Substance: METOCLOPRAMIDE HYDROCHLORIDE
     Dosage: 10 MG
     Route: 048
  10. PROMETHAZINE HCL [Concomitant]
     Active Substance: PROMETHAZINE HYDROCHLORIDE
     Dosage: 1 TABLET, AS NEEDED THREE TIMES A DAY
     Route: 048
  11. INFLECTRA [Suspect]
     Active Substance: INFLIXIMAB-DYYB
     Indication: OSTEOARTHRITIS
     Dosage: CYCLIC (3 VIALS AT 0, 2, 4, AND THEN EVERY 8 WEEKS)
     Route: 042
  12. SYNTHROID [Concomitant]
     Active Substance: LEVOTHYROXINE SODIUM
     Dosage: 1 TABLET, DAILY
     Route: 048
  13. ESTRADIOL. [Concomitant]
     Active Substance: ESTRADIOL
     Dosage: 1 TABLET, DAILY FOR THREE WEEKS , 1 WEEK OFF
     Route: 048
  14. TUMS                               /00193601/ [Concomitant]
     Active Substance: CALCIUM CARBONATE\MAGNESIUM CARBONATE\MAGNESIUM TRISILICATE
     Dosage: 1 TABLET, FOUR TIMES A DAY
     Route: 048
  15. MORPHINE SULFATE. [Concomitant]
     Active Substance: MORPHINE SULFATE
     Dosage: 1 TABLET, AS NEEDED TWICE A DAY
     Route: 048
  16. CYCLOBENZAPRINE. [Concomitant]
     Active Substance: CYCLOBENZAPRINE
     Dosage: 1DF, EVERY 8 HOURS
     Route: 048
  17. LAMOTRIGINE. [Concomitant]
     Active Substance: LAMOTRIGINE
     Dosage: 1 TABLET, DAILY
     Route: 048
  18. INFLECTRA [Suspect]
     Active Substance: INFLIXIMAB-DYYB
     Dosage: CYCLIC (3 VIALS AT 0, 2, 4, AND THEN EVERY 8 WEEKS)
     Route: 042
     Dates: start: 20171002, end: 20171002
  19. PHENERGAN [Concomitant]
     Active Substance: PROMETHAZINE HYDROCHLORIDE
     Dosage: 1 SUPPOSITORY AS NEEDED RECTAL EVERY 12 HOURS
     Route: 054
  20. PRAZOSIN HCL [Concomitant]
     Active Substance: PRAZOSIN HYDROCHLORIDE
     Dosage: 1 MG 4 CAPSULES, DAILY
     Route: 048
  21. PLAQUENIL                          /00072602/ [Concomitant]
     Active Substance: HYDROXYCHLOROQUINE DIPHOSPHATE
     Dosage: 1 TO 2 TABLET WITH FOOD OR MILK
     Route: 048
  22. PLAQUENIL                          /00072602/ [Concomitant]
     Active Substance: HYDROXYCHLOROQUINE DIPHOSPHATE
     Dosage: 200 MG, 12 TABLET WITH FOOD OR MILK
     Route: 048
  23. PREDNISONE. [Concomitant]
     Active Substance: PREDNISONE
     Dosage: 1 TABLET WITH FOOD OR MILK
     Route: 048

REACTIONS (8)
  - Lymph node pain [Unknown]
  - Drug dose omission [Unknown]
  - Alopecia [Recovering/Resolving]
  - Influenza [Recovered/Resolved]
  - Drug prescribing error [Unknown]
  - Lymphadenopathy [Unknown]
  - Off label use [Unknown]
  - Inappropriate schedule of drug administration [Unknown]
